FAERS Safety Report 9052425 (Version 1)
Quarter: 2013Q1

REPORT INFORMATION
  Report Type: Report from Study
  Country: CA (occurrence: CA)
  Receive Date: 20130207
  Receipt Date: 20130207
  Transmission Date: 20140127
  Serious: Yes (Other)
  Sender: FDA-Public Use
  Company Number: CA-ABBOTT-13P-028-1046654-00

PATIENT
  Age: 66 None
  Sex: Male
  Weight: 99.88 kg

DRUGS (1)
  1. HUMIRA [Suspect]
     Indication: CROHN^S DISEASE
     Route: 058
     Dates: start: 20101026, end: 201112

REACTIONS (3)
  - Renal neoplasm [Unknown]
  - Abdominal infection [Recovered/Resolved]
  - Localised infection [Recovered/Resolved]
